FAERS Safety Report 12077604 (Version 1)
Quarter: 2016Q1

REPORT INFORMATION
  Report Type: Spontaneous
  Country: JP (occurrence: JP)
  Receive Date: 20160215
  Receipt Date: 20160215
  Transmission Date: 20160526
  Serious: Yes (Hospitalization)
  Sender: FDA-Public Use
  Company Number: JP-BAYER-2016-023479

PATIENT
  Age: 34 Year
  Sex: Male

DRUGS (4)
  1. BENZA BLOCK NODO [Suspect]
     Active Substance: CETYLPYRIDINIUM CHLORIDE
     Dosage: DOSE 22 DF WITH ALCOHOL
     Route: 048
  2. BAYER ASPIRIN [Suspect]
     Active Substance: ASPIRIN
     Dosage: 180 DF, WITH ALCOHOL
     Route: 048
  3. BUFFERIN A [Suspect]
     Active Substance: ASPIRIN
     Dosage: DOSE 80 DF WITH ALCOHOL
     Route: 048
  4. DECOLGEN (ACETAMINOPHEN\ASCORBIC ACID\CHLORPHENIRAMINE MALEATE\PHENYLPROPANOLAMINE HYDROCHLORIDE) [Suspect]
     Active Substance: ACETAMINOPHEN\ASCORBIC ACID\CHLORPHENIRAMINE MALEATE\PHENYLPROPANOLAMINE HYDROCHLORIDE
     Dosage: DOSE 60 DF WITH ALCOHOL
     Route: 048

REACTIONS (14)
  - Bradycardia [None]
  - Cardio-respiratory arrest [None]
  - Product use issue [None]
  - Compartment syndrome [None]
  - Continuous haemodiafiltration [None]
  - Confusional state [None]
  - Metabolic acidosis [None]
  - Blood pressure decreased [None]
  - Hyperkalaemia [None]
  - Hypoglycaemia [None]
  - Body temperature increased [None]
  - Toxicity to various agents [None]
  - Vomiting [None]
  - Renal disorder [None]
